FAERS Safety Report 16856193 (Version 4)
Quarter: 2020Q3

REPORT INFORMATION
  Report Type: Report from Study
  Country: None (occurrence: AU)
  Receive Date: 20190926
  Receipt Date: 20200930
  Transmission Date: 20201102
  Serious: Yes (Death, Other)
  Sender: FDA-Public Use
  Company Number: AU-ABBVIE-19K-008-2941160-00

PATIENT
  Sex: Male

DRUGS (2)
  1. DUODOPA [Suspect]
     Active Substance: CARBIDOPA\LEVODOPA
  2. DUODOPA [Suspect]
     Active Substance: CARBIDOPA\LEVODOPA
     Indication: PARKINSON^S DISEASE
     Dosage: 100ML GEL CASSETTE?STRENGTH: 20 MG/ML 5 MG/ML
     Route: 050
     Dates: start: 20180426

REACTIONS (6)
  - Femoral neck fracture [Fatal]
  - Pneumonia [Fatal]
  - Fall [Unknown]
  - Impulsive behaviour [Unknown]
  - Hip fracture [Unknown]
  - Dementia [Unknown]

NARRATIVE: CASE EVENT DATE: 2019
